FAERS Safety Report 4955378-7 (Version None)
Quarter: 2006Q1

REPORT INFORMATION
  Report Type: 
  Country: None (occurrence: None)
  Receive Date: 20060322
  Receipt Date: 20060310
  Transmission Date: 20060701
  Serious: No
  Sender: FDA-Public Use
  Company Number: CLOF-10206

PATIENT
  Age: 49 Year
  Sex: Male

DRUGS (2)
  1. CLOLAR [Suspect]
     Indication: ACUTE MYELOID LEUKAEMIA
     Dosage: 40 MG IV
     Route: 042
     Dates: start: 20060302
  2. HIDAC [Suspect]
     Indication: ACUTE MYELOID LEUKAEMIA
     Dosage: 40 MG IV
     Route: 042
     Dates: start: 20060302

REACTIONS (6)
  - CEREBROVASCULAR ACCIDENT [None]
  - EMBOLIC CEREBRAL INFARCTION [None]
  - MASTOID DISORDER [None]
  - NECK MASS [None]
  - PALMAR-PLANTAR ERYTHRODYSAESTHESIA SYNDROME [None]
  - SINUS DISORDER [None]
